FAERS Safety Report 7641983-6 (Version None)
Quarter: 2011Q3

REPORT INFORMATION
  Report Type: 
  Country: None (occurrence: None)
  Receive Date: 20110728
  Receipt Date: 20110725
  Transmission Date: 20111222
  Serious: Yes (Other)
  Sender: FDA-Public Use
  Company Number: US-PFIZER INC-2011169122

PATIENT
  Sex: Female
  Weight: 77.098 kg

DRUGS (5)
  1. METOPROLOL [Concomitant]
     Dosage: 50 MG, UNK
  2. ASPIRIN [Concomitant]
     Dosage: 325 MG, UNK
  3. NAPROXEN (ALEVE) [Concomitant]
     Dosage: UNK, AS NEEDED
  4. LIPITOR [Suspect]
     Indication: CORONARY ARTERIAL STENT INSERTION
     Dosage: 20 MG, 1X/DAY
     Route: 048
     Dates: start: 20061001, end: 20110701
  5. CORTISONE [Concomitant]
     Indication: ARTHRALGIA
     Dosage: UNK

REACTIONS (5)
  - ARTHRALGIA [None]
  - CHROMATURIA [None]
  - CONDITION AGGRAVATED [None]
  - HYPERTENSION [None]
  - PAIN IN EXTREMITY [None]
